FAERS Safety Report 8126073 (Version 5)
Quarter: 2012Q4

REPORT INFORMATION
  Report Type: 
  Country: US (occurrence: US)
  Receive Date: 20110908
  Receipt Date: 20121219
  Transmission Date: 20130627
  Serious: Yes (Life-Threatening, Hospitalization, Other)
  Sender: FDA-Public Use
  Company Number: PHEH2011US03196

PATIENT
  Age: 53 None
  Sex: Female

DRUGS (23)
  1. RECLAST [Suspect]
     Indication: OSTEOPOROSIS
     Route: 042
     Dates: start: 20101220
  2. ACETAMINOPHEN [Concomitant]
     Dosage: UNK UKN, UNK
  3. HYDROCORTISON [Concomitant]
     Dosage: UNK UKN, UNK
  4. ATENOLOL [Concomitant]
     Dosage: 75 mg, UNK
  5. PROMETHAZINE [Concomitant]
     Dosage: 50 mg, TID
  6. ALPRAZOLAM [Concomitant]
     Dosage: 1 mg, four times a day
  7. SYMBICORT [Concomitant]
     Dosage: UNK UKN, BID
  8. PROAIR (FLUTICASONE PROPIONATE) [Concomitant]
     Dosage: UNK UKN, UNK
  9. ATROVENT [Concomitant]
     Indication: CHRONIC OBSTRUCTIVE PULMONARY DISEASE
     Dosage: UNK UKN, UNK
  10. AMLODIPINE BESILATE [Concomitant]
     Dosage: 10 mg, UNK
  11. SODIUM BICARBONATE [Concomitant]
     Dosage: 50 mg, BID
  12. TOPAMAX [Concomitant]
     Dosage: 50 mg, BID
  13. CYANOCOBALAMIN [Concomitant]
     Dosage: UNK UKN, UNK
  14. MIRAPEX [Concomitant]
     Dosage: UNK UKN, UNK
  15. BENZONATATE [Concomitant]
     Indication: COUGH
     Dosage: 200 mg, TID
  16. ASPIRIN [Concomitant]
     Dosage: 81 mg, UNK
  17. LYRICA [Concomitant]
     Dosage: 75 mg, TID
  18. PROTONIX [Concomitant]
     Dosage: 40 mg, UNK
  19. LASIX [Concomitant]
     Dosage: 40 mg, BID
  20. ALBUTEROL SULFATE [Concomitant]
     Dosage: 0.083 %, TID
  21. TRIAMCINOLONE ACETONIDE [Concomitant]
     Dosage: 0.1 %, UNK
  22. BENADRYL [Concomitant]
     Dosage: 25 mg, BID
  23. CARISOPRODOL [Concomitant]
     Dosage: 350 mg, UNK

REACTIONS (23)
  - Feeling abnormal [Unknown]
  - Bone marrow failure [Unknown]
  - Hepatic failure [Unknown]
  - Pneumonia viral [Unknown]
  - Renal failure acute [Unknown]
  - Nephropathy toxic [Unknown]
  - Renal injury [Unknown]
  - Emotional disorder [Unknown]
  - Injury [Unknown]
  - Foot fracture [Unknown]
  - Brain injury [Unknown]
  - Weight decreased [Unknown]
  - Eye pain [Unknown]
  - Blood pressure increased [Unknown]
  - Platelet count decreased [Unknown]
  - Bronchitis [Unknown]
  - Gait disturbance [Unknown]
  - Influenza [Unknown]
  - Malaise [Unknown]
  - Asthenia [Unknown]
  - Hyperhidrosis [Unknown]
  - Dyspnoea [Unknown]
  - Drug ineffective [Unknown]
